FAERS Safety Report 18979135 (Version 1)
Quarter: 2021Q1

REPORT INFORMATION
  Report Type: Spontaneous
  Country: US (occurrence: US)
  Receive Date: 20210308
  Receipt Date: 20210308
  Transmission Date: 20210420
  Serious: No
  Sender: FDA-Public Use
  Company Number: US-GLAXOSMITHKLINE-USCH2021010800

PATIENT
  Sex: Female

DRUGS (1)
  1. ABREVA [Suspect]
     Active Substance: DOCOSANOL
     Indication: ORAL MUCOSAL BLISTERING

REACTIONS (3)
  - Oral pain [Unknown]
  - Incorrect product administration duration [Unknown]
  - Therapeutic product effect incomplete [Unknown]
